FAERS Safety Report 15946060 (Version 2)
Quarter: 2019Q1

REPORT INFORMATION
  Report Type: Spontaneous
  Country: PL (occurrence: PL)
  Receive Date: 20190212
  Receipt Date: 20190308
  Transmission Date: 20190417
  Serious: Yes (Other)
  Sender: FDA-Public Use
  Company Number: PHHY2019PL032023

PATIENT
  Age: 41 Year
  Sex: Female

DRUGS (11)
  1. RANIGAST [Concomitant]
     Indication: ANTIALLERGIC THERAPY
  2. METOCLOPRAMID [Concomitant]
     Active Substance: METOCLOPRAMIDE
     Indication: ANTIEMETIC SUPPORTIVE CARE
     Route: 065
  3. PRAMOLAN [Concomitant]
     Active Substance: OPIPRAMOL HYDROCHLORIDE
     Indication: ANTIALLERGIC THERAPY
  4. PRAMOLAN [Concomitant]
     Active Substance: OPIPRAMOL HYDROCHLORIDE
     Indication: ANTIEMETIC SUPPORTIVE CARE
     Route: 065
  5. RANIGAST [Concomitant]
     Indication: ANTIEMETIC SUPPORTIVE CARE
     Route: 065
  6. DEXAVEN [Concomitant]
     Active Substance: DEXAMETHASONE
     Indication: ANTIEMETIC SUPPORTIVE CARE
     Route: 065
  7. CLEMASTINE [Concomitant]
     Active Substance: CLEMASTINE
     Indication: ANTIEMETIC SUPPORTIVE CARE
     Route: 065
  8. CLEMASTINE [Concomitant]
     Active Substance: CLEMASTINE
     Indication: ANTIALLERGIC THERAPY
  9. PACLITAXEL. [Suspect]
     Active Substance: PACLITAXEL
     Indication: BREAST CANCER METASTATIC
     Dosage: 115 MG, QW
     Route: 042
     Dates: start: 201811, end: 20190205
  10. METOCLOPRAMID [Concomitant]
     Active Substance: METOCLOPRAMIDE
     Indication: ANTIALLERGIC THERAPY
  11. DEXAVEN [Concomitant]
     Active Substance: DEXAMETHASONE
     Indication: ANTIALLERGIC THERAPY

REACTIONS (1)
  - Electrocardiogram QT prolonged [Unknown]
